FAERS Safety Report 19846529 (Version 1)
Quarter: 2021Q3

REPORT INFORMATION
  Report Type: Spontaneous
  Country: US (occurrence: US)
  Receive Date: 20210917
  Receipt Date: 20210917
  Transmission Date: 20211014
  Serious: Yes (Death, Hospitalization)
  Sender: FDA-Public Use
  Company Number: US-MYLANLABS-2021M1062666

PATIENT
  Age: 57 Year
  Sex: Male

DRUGS (10)
  1. LEVOFLOXACIN. [Concomitant]
     Active Substance: LEVOFLOXACIN
     Indication: PROPHYLAXIS
     Dosage: UNK
     Route: 065
  2. METHYLPREDNISOLONE. [Suspect]
     Active Substance: METHYLPREDNISOLONE
     Indication: IMMUNOSUPPRESSANT DRUG THERAPY
     Dosage: UNK
     Route: 065
  3. AMPHOTERICIN [Concomitant]
     Active Substance: AMPHOTERICIN B
     Indication: PROPHYLAXIS
     Dosage: UNK
  4. VANCOMYCIN [Concomitant]
     Active Substance: VANCOMYCIN
     Indication: PROPHYLAXIS
     Dosage: UNK
     Route: 042
  5. HEPARIN [Concomitant]
     Active Substance: HEPARIN SODIUM
     Indication: ANTICOAGULANT THERAPY
     Dosage: UNK
     Route: 042
  6. CEFEPIME [Concomitant]
     Active Substance: CEFEPIME HYDROCHLORIDE
     Indication: PROPHYLAXIS
     Dosage: UNK
     Route: 065
  7. MEROPENEM. [Concomitant]
     Active Substance: MEROPENEM
     Indication: PROPHYLAXIS
     Dosage: UNK
     Route: 042
  8. MYCOPHENOLATE MOFETIL. [Suspect]
     Active Substance: MYCOPHENOLATE MOFETIL
     Indication: IMMUNOSUPPRESSANT DRUG THERAPY
     Dosage: UNK
     Route: 065
  9. BASILIXIMAB [Suspect]
     Active Substance: BASILIXIMAB
     Indication: IMMUNOSUPPRESSANT DRUG THERAPY
     Dosage: UNK
     Route: 065
  10. VORICONAZOLE. [Concomitant]
     Active Substance: VORICONAZOLE
     Indication: ANTIFUNGAL PROPHYLAXIS
     Dosage: UNK
     Route: 042

REACTIONS (7)
  - Mediastinitis [Fatal]
  - Bronchitis [Fatal]
  - Acute myocardial infarction [Fatal]
  - Aortitis [Fatal]
  - Arterial thrombosis [Fatal]
  - Disseminated mucormycosis [Fatal]
  - Arteritis coronary [Fatal]
